FAERS Safety Report 12269266 (Version 2)
Quarter: 2016Q2

REPORT INFORMATION
  Report Type: Report from Study
  Country: CO (occurrence: CO)
  Receive Date: 20160414
  Receipt Date: 20160429
  Transmission Date: 20160815
  Serious: Yes (Hospitalization, Other)
  Sender: FDA-Public Use
  Company Number: CO-JNJFOC-20160410909

PATIENT
  Age: 69 Year
  Sex: Male
  Weight: 65 kg

DRUGS (1)
  1. IMBRUVICA [Suspect]
     Active Substance: IBRUTINIB
     Indication: CHRONIC LYMPHOCYTIC LEUKAEMIA
     Route: 048
     Dates: start: 20150708, end: 20160415

REACTIONS (7)
  - Febrile neutropenia [Not Recovered/Not Resolved]
  - Inflammation [Recovered/Resolved]
  - Tooth extraction [Recovered/Resolved]
  - Hordeolum [Not Recovered/Not Resolved]
  - Surgery [Not Recovered/Not Resolved]
  - Erythema [Not Recovered/Not Resolved]
  - Periorbital cellulitis [Not Recovered/Not Resolved]

NARRATIVE: CASE EVENT DATE: 201604
